FAERS Safety Report 24035107 (Version 3)
Quarter: 2024Q3

REPORT INFORMATION
  Report Type: Report from Study
  Country: DE (occurrence: DE)
  Receive Date: 20240701
  Receipt Date: 20240709
  Transmission Date: 20241017
  Serious: No
  Sender: PFIZER
  Company Number: DE-PFM-2024-03637

PATIENT
  Age: 72 Year
  Sex: Female

DRUGS (13)
  1. ENCORAFENIB [Suspect]
     Active Substance: ENCORAFENIB
     Indication: Malignant melanoma
     Dosage: 225 MG, QD (1/DAY)
     Route: 048
     Dates: start: 20240322, end: 20240325
  2. ENCORAFENIB [Suspect]
     Active Substance: ENCORAFENIB
     Dosage: 225 MG, QD (1/DAY)
     Route: 048
     Dates: start: 20240328
  3. ENCORAFENIB [Suspect]
     Active Substance: ENCORAFENIB
     Dosage: 450 MG, QD (1/DAY)
     Route: 048
     Dates: start: 20240403
  4. BINIMETINIB [Suspect]
     Active Substance: BINIMETINIB
     Indication: Malignant melanoma
     Dosage: 30 MG, BID (2/DAY)
     Route: 048
     Dates: start: 20240322, end: 20240325
  5. BINIMETINIB [Suspect]
     Active Substance: BINIMETINIB
     Dosage: 60 MG, QD (1/DAY)
     Route: 048
     Dates: start: 20240328
  6. BINIMETINIB [Suspect]
     Active Substance: BINIMETINIB
     Dosage: 45 MG, BID (2/DAY)
     Route: 048
     Dates: start: 20240403
  7. BUDESONIDE [Concomitant]
     Active Substance: BUDESONIDE
     Indication: Prophylaxis
     Dosage: UNK
     Route: 065
     Dates: end: 20240425
  8. ACETYLCYSTEINE [Concomitant]
     Active Substance: ACETYLCYSTEINE
     Indication: Prophylaxis
     Dosage: UNK
     Route: 065
     Dates: end: 20240425
  9. INSULIN GLARGINE [Concomitant]
     Active Substance: INSULIN GLARGINE
     Dosage: UNK
     Route: 065
  10. LEVOTHYROXINE SODIUM [Concomitant]
     Active Substance: LEVOTHYROXINE SODIUM
     Dosage: UNK
     Route: 065
     Dates: start: 20240328
  11. POLYETHYLENE GLYCOLS [Concomitant]
     Active Substance: POLYETHYLENE GLYCOLS
     Indication: Vomiting
     Dosage: UNK
     Route: 065
     Dates: start: 20240326, end: 20240425
  12. METFORMIN HYDROCHLORIDE [Concomitant]
     Active Substance: METFORMIN HYDROCHLORIDE
     Dosage: UNK
     Route: 065
  13. HYDROCORTISONE [Concomitant]
     Active Substance: HYDROCORTISONE\HYDROCORTISONE ACETATE
     Indication: Prophylaxis
     Dosage: UNK
     Route: 065

REACTIONS (4)
  - Syncope [Recovered/Resolved]
  - Fatigue [Not Recovered/Not Resolved]
  - Prescribed underdose [Unknown]
  - Product use issue [Unknown]

NARRATIVE: CASE EVENT DATE: 20240322
